FAERS Safety Report 22194740 (Version 1)
Quarter: 2023Q2

REPORT INFORMATION
  Report Type: Spontaneous
  Country: DE (occurrence: DE)
  Receive Date: 20230411
  Receipt Date: 20230411
  Transmission Date: 20230721
  Serious: Yes (Death, Other)
  Sender: FDA-Public Use
  Company Number: None

PATIENT
  Age: 73 Year
  Sex: Female
  Weight: 81.2 kg

DRUGS (12)
  1. XARELTO [Suspect]
     Active Substance: RIVAROXABAN
     Indication: Product used for unknown indication
     Dosage: 15 MG, QD
     Route: 048
     Dates: start: 201503, end: 201505
  2. TORSEMIDE [Suspect]
     Active Substance: TORSEMIDE
     Dosage: 10 MG, QD
     Dates: start: 201310, end: 201505
  3. ASPIRIN [Suspect]
     Active Substance: ASPIRIN
     Indication: Product used for unknown indication
     Dosage: 100 MG, QD
     Route: 065
     Dates: start: 201308, end: 201505
  4. RAMIPRIL [Suspect]
     Active Substance: RAMIPRIL
     Dosage: 5 MG, BID
     Dates: start: 201308, end: 201505
  5. PANTOPRAZOLE [Suspect]
     Active Substance: PANTOPRAZOLE
     Dosage: 40 MG, QD
     Dates: start: 201403, end: 201505
  6. SIMVASTATIN [Suspect]
     Active Substance: SIMVASTATIN
     Indication: Product used for unknown indication
     Dosage: 40 MG, QD
     Dates: start: 201401, end: 201505
  7. POLYETHYLENE GLYCOL\POTASSIUM CHLORIDE\SODIUM BICARBONATE\SODIUM CHLOR [Suspect]
     Active Substance: POLYETHYLENE GLYCOL\POTASSIUM CHLORIDE\SODIUM BICARBONATE\SODIUM CHLORIDE
     Dosage: 1 DF, QD
     Dates: start: 201308, end: 201505
  8. GABAPENTIN [Suspect]
     Active Substance: GABAPENTIN
     Dosage: 300 MG, BID
     Dates: start: 201503, end: 201505
  9. ACTRAPHANE [Suspect]
     Active Substance: INSULIN HUMAN
     Dosage: 18-8
     Dates: start: 201401, end: 201505
  10. BACLOFEN [Suspect]
     Active Substance: BACLOFEN
     Dosage: 25 MG
     Dates: start: 201404, end: 201505
  11. FENTANYL [Suspect]
     Active Substance: FENTANYL
     Indication: Product used for unknown indication
     Dosage: 25 MG, EVERY THREE DAYS
     Dates: start: 201407, end: 201505
  12. AMLODIPINE [Suspect]
     Active Substance: AMLODIPINE BESYLATE
     Dosage: 0.5 DF, BID
     Dates: start: 201309, end: 201505

REACTIONS (10)
  - Sepsis [Fatal]
  - Lactic acidosis [Fatal]
  - Sinusitis [Fatal]
  - Dehydration [Fatal]
  - Pneumonia aspiration [Fatal]
  - Septic shock [Fatal]
  - Hyperglycaemia [Fatal]
  - Renal failure [Fatal]
  - Urosepsis [Fatal]
  - Legionella test [Fatal]

NARRATIVE: CASE EVENT DATE: 20150101
